FAERS Safety Report 6276585-X (Version None)
Quarter: 2009Q3

REPORT INFORMATION
  Report Type: 
  Country: None (occurrence: None)
  Receive Date: 20090722
  Receipt Date: 20080609
  Transmission Date: 20100115
  Serious: No
  Sender: FDA-Public Use
  Company Number: US-BRISTOL-MYERS SQUIBB COMPANY-14165237

PATIENT
  Age: 56 Year
  Sex: Female
  Weight: 107 kg

DRUGS (10)
  1. COUMADIN [Suspect]
     Indication: THROMBOSIS
     Dosage: 1 DOSAGE FORM=57.5(UNIT NOT SPECIFIED)(7.5X5 DAYS+10X2DAYS) ; NOW DOSE 5(NO UNIT) TWICE
     Dates: start: 20080101
  2. ALDACTONE [Concomitant]
  3. LEVOXYL [Concomitant]
  4. GLUCOVANCE [Concomitant]
  5. VALIUM [Concomitant]
  6. VICODIN [Concomitant]
  7. NEXIUM [Concomitant]
  8. CRESTOR [Concomitant]
  9. ATENOLOL [Concomitant]
  10. AMBIEN [Concomitant]

REACTIONS (6)
  - ALOPECIA [None]
  - BLISTER [None]
  - DECREASED APPETITE [None]
  - FATIGUE [None]
  - SOMNOLENCE [None]
  - WEIGHT DECREASED [None]
